FAERS Safety Report 7750294-X (Version None)
Quarter: 2011Q3

REPORT INFORMATION
  Report Type: 
  Country: None (occurrence: None)
  Receive Date: 20110914
  Receipt Date: 20110901
  Transmission Date: 20111222
  Serious: Yes (Hospitalization, Other)
  Sender: FDA-Public Use
  Company Number: US-ELI_LILLY_AND_COMPANY-US201107002751

PATIENT
  Sex: Female
  Weight: 47 kg

DRUGS (9)
  1. FORTEO [Suspect]
     Dosage: 20 UG, QD
     Route: 065
     Dates: end: 20110601
  2. RANITIDINE [Concomitant]
  3. ZOFRAN [Concomitant]
  4. PEPCID [Concomitant]
  5. FORTEO [Suspect]
     Indication: OSTEOPOROSIS
     Dosage: 20 UG, QD
     Route: 065
     Dates: start: 20110401
  6. COUMADIN [Concomitant]
  7. ANALGESICS [Concomitant]
  8. FORTEO [Suspect]
     Dosage: 20 UG, QD
     Route: 065
  9. POTASSIUM [Concomitant]

REACTIONS (10)
  - THROMBOSIS [None]
  - ELECTROLYTE IMBALANCE [None]
  - GASTRIC CANCER [None]
  - NECK MASS [None]
  - URINARY TRACT INFECTION [None]
  - OESOPHAGEAL CARCINOMA [None]
  - LOSS OF CONSCIOUSNESS [None]
  - ASTHENIA [None]
  - BLOOD POTASSIUM DECREASED [None]
  - HYPERSENSITIVITY [None]
